FAERS Safety Report 23265172 (Version 4)
Quarter: 2024Q1

REPORT INFORMATION
  Report Type: Spontaneous
  Country: US (occurrence: US)
  Receive Date: 20231206
  Receipt Date: 20240325
  Transmission Date: 20240409
  Serious: Yes (Other)
  Sender: FDA-Public Use
  Company Number: US-BRISTOL-MYERS SQUIBB COMPANY-2023-175814

PATIENT
  Age: 75 Year
  Sex: Female

DRUGS (2)
  1. POMALYST [Suspect]
     Active Substance: POMALIDOMIDE
     Indication: Plasma cell myeloma
     Route: 048
  2. POMALYST [Suspect]
     Active Substance: POMALIDOMIDE
     Indication: White blood cell count decreased
     Dosage: QD FOR 21 DAYS ON AND 7 DAYS OFF
     Route: 048
     Dates: start: 20231109

REACTIONS (2)
  - Full blood count decreased [Unknown]
  - Diarrhoea [Not Recovered/Not Resolved]
